FAERS Safety Report 23759557 (Version 1)
Quarter: 2024Q2

REPORT INFORMATION
  Report Type: Report from Study
  Country: CH (occurrence: CH)
  Receive Date: 20240418
  Receipt Date: 20240418
  Transmission Date: 20240716
  Serious: Yes (Other)
  Sender: FDA-Public Use
  Company Number: CH-ABBVIE-5707322

PATIENT
  Age: 78 Year
  Sex: Male

DRUGS (6)
  1. CARBIDOPA\LEVODOPA [Suspect]
     Active Substance: CARBIDOPA\LEVODOPA
     Indication: Parkinson^s disease
     Dosage: MD: 10.0 ML, CRD: 5.6 ML/H, ED: 5.00  ML; CRN: 2.4 ML/H
     Route: 050
     Dates: start: 20240415
  2. CARBIDOPA\LEVODOPA [Suspect]
     Active Substance: CARBIDOPA\LEVODOPA
     Dosage: MD: 10.0 ML, CRD: 5.4 ML/H, ED: 2.00  ML; CRN: 2.4 ML/H?FREQUENCY TEXT: 24H THERAPY
     Route: 050
     Dates: start: 20230823, end: 20240123
  3. CARBIDOPA\LEVODOPA [Suspect]
     Active Substance: CARBIDOPA\LEVODOPA
     Dosage: FREQUENCY TEXT: 24H THERAPY
     Route: 050
     Dates: start: 20211122
  4. CARBIDOPA\LEVODOPA [Suspect]
     Active Substance: CARBIDOPA\LEVODOPA
     Dosage: MD: 10.0 ML, CRD: 5.6 ML/H, ED: 2.00  ML; CRN: 2.4 ML/H?FREQUENCY TEXT: 24H THERAPY
     Route: 050
     Dates: start: 20240403, end: 20240403
  5. CARBIDOPA\LEVODOPA [Suspect]
     Active Substance: CARBIDOPA\LEVODOPA
     Dosage: MD: 10.0 ML, CRD: 5.6 ML/H, ED: 5.00  ML; CRN: 2.4 ML/H?FREQUENCY TEXT: 24H THERAPY?LAST ADMIN DA...
     Route: 050
     Dates: start: 20240404
  6. CARBIDOPA\LEVODOPA [Suspect]
     Active Substance: CARBIDOPA\LEVODOPA
     Dosage: MD: 10.0 ML, CRD: 5.6 ML/H, ED: 2.00  ML; CRN: 2.4 ML/H
     Route: 050
     Dates: start: 20240123, end: 20240403

REACTIONS (5)
  - Oesophageal injury [Not Recovered/Not Resolved]
  - Oesophageal stenosis [Not Recovered/Not Resolved]
  - Off label use [Recovered/Resolved]
  - Enteral nutrition [Not Recovered/Not Resolved]
  - Unevaluable event [Not Recovered/Not Resolved]

NARRATIVE: CASE EVENT DATE: 20240401
